FAERS Safety Report 4464896-X (Version None)
Quarter: 2004Q4

REPORT INFORMATION
  Report Type: 
  Country: None (occurrence: None)
  Receive Date: 20041004
  Receipt Date: 20040202
  Transmission Date: 20050328
  Serious: No
  Sender: FDA-Public Use
  Company Number: 361822

PATIENT
  Age: 64 Year
  Sex: Male

DRUGS (2)
  1. COREG [Suspect]
     Route: 048
  2. PLAVIX [Concomitant]

REACTIONS (1)
  - CHEST PAIN [None]
